FAERS Safety Report 20535552 (Version 1)
Quarter: 2022Q1

REPORT INFORMATION
  Report Type: Report from Study
  Country: AU (occurrence: AU)
  Receive Date: 20220302
  Receipt Date: 20220302
  Transmission Date: 20220423
  Serious: Yes (Other)
  Sender: FDA-Public Use
  Company Number: AU-JNJFOC-20210823012

PATIENT
  Age: 77 Year
  Sex: Female

DRUGS (3)
  1. TREMFYA [Suspect]
     Active Substance: GUSELKUMAB
     Indication: Psoriasis
     Dosage: INITIAL
     Route: 058
     Dates: start: 20201013, end: 20210622
  2. TREMFYA [Suspect]
     Active Substance: GUSELKUMAB
  3. COVID-19 VACCINE [Concomitant]
     Dates: start: 20210810

REACTIONS (5)
  - Pneumonia [Not Recovered/Not Resolved]
  - Cardiac failure [Not Recovered/Not Resolved]
  - Product dose omission issue [Unknown]
  - Influenza [Not Recovered/Not Resolved]
  - Psoriasis [Not Recovered/Not Resolved]

NARRATIVE: CASE EVENT DATE: 20210101
